FAERS Safety Report 8048087-1 (Version None)
Quarter: 2012Q1

REPORT INFORMATION
  Report Type: 
  Country: None (occurrence: None)
  Receive Date: 20120113
  Receipt Date: 20120113
  Transmission Date: 20120608
  Serious: Yes (Other)
  Sender: FDA-Public Use
  Company Number: None

PATIENT
  Age: 65 Year
  Sex: Male
  Weight: 69.6 kg

DRUGS (1)
  1. PHENYTOIN [Suspect]
     Indication: CONVULSION
     Dosage: 100 MG BID PO
     Route: 048
     Dates: start: 20111011, end: 20111202

REACTIONS (2)
  - PRODUCT SUBSTITUTION ISSUE [None]
  - ANTICONVULSANT DRUG LEVEL DECREASED [None]
